FAERS Safety Report 15234785 (Version 2)
Quarter: 2018Q3

REPORT INFORMATION
  Report Type: Spontaneous
  Country: IT (occurrence: IT)
  Receive Date: 20180803
  Receipt Date: 20180816
  Transmission Date: 20181010
  Serious: Yes (Hospitalization)
  Sender: FDA-Public Use
  Company Number: IT-TEVA-2018-IT-933449

PATIENT
  Age: 88 Year
  Sex: Female

DRUGS (5)
  1. ARCOXIA [Concomitant]
     Active Substance: ETORICOXIB
  2. KADIUR [Suspect]
     Active Substance: BUTHIAZIDE\CANRENOATE POTASSIUM
     Indication: OEDEMA
     Dosage: 50 MILLIGRAM DAILY; FORM STRENGTH: 50MG/5MG. 50 MG + 5 MG COMPRESSE RIVESTITE CON FILM
     Route: 048
  3. ENALAPRIL [Suspect]
     Active Substance: ENALAPRIL
     Indication: HYPERTENSION
     Dosage: 20 MILLIGRAM DAILY;
     Route: 048
  4. SELES BETA [Concomitant]
     Active Substance: ATENOLOL
  5. DIAMICRON [Concomitant]
     Active Substance: GLICLAZIDE

REACTIONS (4)
  - Abnormal behaviour [Not Recovered/Not Resolved]
  - Condition aggravated [Not Recovered/Not Resolved]
  - Hyponatraemia [Not Recovered/Not Resolved]
  - Hyperkalaemia [Not Recovered/Not Resolved]

NARRATIVE: CASE EVENT DATE: 20180701
